FAERS Safety Report 9042666 (Version 1)
Quarter: 2013Q1

REPORT INFORMATION
  Report Type: Report from Study
  Country: US (occurrence: US)
  Receive Date: 20130129
  Receipt Date: 20130129
  Transmission Date: 20140127
  Serious: No
  Sender: FDA-Public Use
  Company Number: US-ABBOTT-12P-163-0905650-00

PATIENT
  Age: 58 Year
  Sex: Female

DRUGS (22)
  1. HUMIRA 40 MG/0.8 ML PEN [Suspect]
     Indication: CROHN^S DISEASE
     Dates: start: 20111122
  2. SYNTHROID [Concomitant]
     Indication: HYPOTHYROIDISM
  3. OMEPRAZOLE [Concomitant]
     Indication: GASTROOESOPHAGEAL REFLUX DISEASE
  4. LYRICA [Concomitant]
     Indication: PAIN MANAGEMENT
  5. MICARDIS [Concomitant]
     Indication: BLOOD PRESSURE
  6. BENTYL [Concomitant]
     Indication: PRODUCT USED FOR UNKNOWN INDICATION
     Dosage: TAKES 1-2 BEFORE MEALS AND BEDTIME
  7. METHADONE [Concomitant]
     Indication: PAIN MANAGEMENT
     Dosage: 6 TABLETS DAILY IN DIVIDED DOSES
  8. HYDROCODONE [Concomitant]
     Indication: PAIN MANAGEMENT
     Dosage: 10/500 MG QID
  9. SKELAXIN [Concomitant]
     Indication: PAIN
     Dosage: 800MG QID AND PRN
  10. LIDODERM [Concomitant]
     Indication: PAIN
     Dosage: 5% PATCH TID
     Route: 061
  11. ESTRADIOL [Concomitant]
     Indication: HORMONE REPLACEMENT THERAPY
     Dosage: 1.0/0.5 MG DAILY
  12. ALIGN [Concomitant]
     Indication: SUPPLEMENTATION THERAPY
  13. POLY IRON [Concomitant]
     Indication: ANAEMIA
  14. MULTIVITAMIN [Concomitant]
     Indication: PRODUCT USED FOR UNKNOWN INDICATION
  15. CALCIUM PLUS VITAMIN D [Concomitant]
     Indication: PRODUCT USED FOR UNKNOWN INDICATION
  16. POTASSIUM [Concomitant]
     Indication: PRODUCT USED FOR UNKNOWN INDICATION
  17. MAGNESIUM [Concomitant]
     Indication: PRODUCT USED FOR UNKNOWN INDICATION
  18. LYSINE [Concomitant]
     Indication: PRODUCT USED FOR UNKNOWN INDICATION
  19. B12 [Concomitant]
     Indication: INTRINSIC FACTOR DEFICIENCY
     Route: 050
  20. FLONASE [Concomitant]
     Indication: HYPERSENSITIVITY
  21. DICLOFENAC [Concomitant]
     Indication: PRODUCT USED FOR UNKNOWN INDICATION
     Dates: end: 20120203
  22. PREDNISONE [Concomitant]
     Indication: PRODUCT USED FOR UNKNOWN INDICATION
     Dosage: TAPERING DOSE, 5MG LESS EACH WK TIL DONE

REACTIONS (2)
  - Blood test abnormal [Recovering/Resolving]
  - Malaise [Unknown]
